FAERS Safety Report 5856602-9 (Version None)
Quarter: 2008Q3

REPORT INFORMATION
  Report Type: 
  Country: None (occurrence: None)
  Receive Date: 20080825
  Receipt Date: 20080820
  Transmission Date: 20090109
  Serious: Yes (Hospitalization)
  Sender: FDA-Public Use
  Company Number: GB-MERCK-0808GBR00082

PATIENT
  Age: 65 Year
  Sex: Female

DRUGS (11)
  1. HYDRODIURIL [Suspect]
     Indication: HYPERTENSION
     Route: 048
     Dates: end: 20080722
  2. VALSARTAN [Suspect]
     Indication: HYPERTENSION
     Route: 048
     Dates: end: 20080722
  3. AMLODIPINE BESYLATE [Concomitant]
     Indication: HYPERTENSION
     Route: 065
     Dates: start: 20080709
  4. ARIPIPRAZOLE [Concomitant]
     Route: 065
  5. ASPIRIN [Concomitant]
     Route: 065
  6. ACETAMINOPHEN AND CODEINE PHOSPHATE [Concomitant]
     Indication: PAIN
     Route: 065
  7. DOXAZOSIN MESYLATE [Concomitant]
     Indication: HYPERTENSION
     Route: 065
     Dates: start: 20080709
  8. FERROUS SULFATE [Concomitant]
     Route: 065
  9. IBUPROFEN [Concomitant]
     Route: 065
  10. LANSOPRAZOLE [Concomitant]
     Route: 065
  11. SIMVASTATIN [Concomitant]
     Route: 065

REACTIONS (5)
  - ANAPHYLACTOID REACTION [None]
  - ANGIOEDEMA [None]
  - DYSPNOEA [None]
  - RASH GENERALISED [None]
  - WHEEZING [None]
